FAERS Safety Report 13081761 (Version 3)
Quarter: 2017Q1

REPORT INFORMATION
  Report Type: Report from Study
  Country: US (occurrence: US)
  Receive Date: 20170103
  Receipt Date: 20170323
  Transmission Date: 20170428
  Serious: Yes (Hospitalization, Other)
  Sender: FDA-Public Use
  Company Number: US-PFIZER INC-2016592639

PATIENT
  Age: 68 Year
  Sex: Female
  Weight: 95.69 kg

DRUGS (2)
  1. IBRANCE [Suspect]
     Active Substance: PALBOCICLIB
     Dosage: 125 MG, CYCLIC (DAILY FOR 21 DAYS THEN OFF FOR 7 DAYS)
     Route: 048
     Dates: start: 20161228
  2. IBRANCE [Suspect]
     Active Substance: PALBOCICLIB
     Indication: BREAST CANCER METASTATIC
     Dosage: 125 MG, CYCLIC (ONCE DAILY DAYS 1-21 Q 28 DAYS)
     Route: 048
     Dates: start: 20161117

REACTIONS (2)
  - Foot fracture [Unknown]
  - Pneumonia [Unknown]

NARRATIVE: CASE EVENT DATE: 20170307
